FAERS Safety Report 4545365-5 (Version None)
Quarter: 2005Q1

REPORT INFORMATION
  Report Type: 
  Country: None (occurrence: None)
  Receive Date: 20050103
  Receipt Date: 20041215
  Transmission Date: 20050727
  Serious: Yes (Hospitalization)
  Sender: FDA-Public Use
  Company Number: F01200400858

PATIENT
  Age: 60 Year
  Sex: Male

DRUGS (10)
  1. (OXALIPLATIN) - SOLUTION - 290 MG [Suspect]
     Indication: COLORECTAL CANCER METASTATIC
     Dosage: 290 MG Q3W, INTRAVENOUS NOS
     Route: 042
  2. (CAPECITABINE) - TABLET - 2300 MG / SOLUTION - 2300 MG [Suspect]
     Dosage: 2300 MG TWICE DAILY FOR 2 WEEKS ORAL; INTRAVENOUS
     Route: 048
  3. PROTIUM (PANTOPRAZOLE SODIUM) [Concomitant]
  4. CORSODYL MOUTHWASH (CHLORHEXIDINE GLUCONATE) [Concomitant]
  5. MYCOSTATIN [Concomitant]
  6. ZOFRAN [Concomitant]
  7. MAXOLON [Concomitant]
  8. DEXAMETHASONE [Concomitant]
  9. PAROXETINE HCL [Concomitant]
  10. TEMAZEPAM [Concomitant]

REACTIONS (4)
  - DEEP VEIN THROMBOSIS [None]
  - GLOMERULONEPHRITIS MEMBRANOUS [None]
  - LUNG INFECTION [None]
  - RENAL FAILURE ACUTE [None]
